FAERS Safety Report 6840318-6 (Version None)
Quarter: 2010Q3

REPORT INFORMATION
  Report Type: 
  Country: None (occurrence: None)
  Receive Date: 20100714
  Receipt Date: 20100707
  Transmission Date: 20110219
  Serious: Yes (Death)
  Sender: FDA-Public Use
  Company Number: JP-EISAI INC.-E2020-07014-SPO-JP

PATIENT
  Sex: Female

DRUGS (5)
  1. ARICEPT [Suspect]
     Indication: DEMENTIA ALZHEIMER'S TYPE
     Route: 048
     Dates: end: 20091001
  2. ARICEPT [Suspect]
     Route: 048
     Dates: start: 20091001, end: 20100601
  3. AMOBAN [Concomitant]
  4. GRAMALIL [Concomitant]
  5. SEROQUEL [Concomitant]

REACTIONS (1)
  - SUDDEN DEATH [None]
